FAERS Safety Report 7668179-6 (Version None)
Quarter: 2011Q3

REPORT INFORMATION
  Report Type: 
  Country: None (occurrence: None)
  Receive Date: 20110808
  Receipt Date: 20110802
  Transmission Date: 20111222
  Serious: Yes (Hospitalization)
  Sender: FDA-Public Use
  Company Number: US-JNJFOC-20110406314

PATIENT
  Sex: Male

DRUGS (25)
  1. ABIRATERONE ACETATE [Suspect]
     Route: 048
  2. LEUPROLIDE ACETATE [Concomitant]
     Route: 030
     Dates: start: 20080818
  3. HYDROCODONE BITARTRATE AND ACETAMINOPHEN [Concomitant]
     Indication: CANCER PAIN
     Route: 048
     Dates: start: 20090401
  4. TRAMADOL HCL [Concomitant]
     Indication: CANCER PAIN
     Route: 048
     Dates: start: 20101001
  5. AUGMENTIN '125' [Concomitant]
     Indication: PROPHYLAXIS
     Route: 048
     Dates: start: 20110301
  6. ESCITALOPRAM [Concomitant]
     Indication: ANXIETY
     Route: 048
     Dates: start: 20050510
  7. LEUPROLIDE ACETATE [Concomitant]
     Indication: HORMONE THERAPY
     Route: 030
     Dates: start: 20040213
  8. ACETAMINOPHEN [Concomitant]
     Indication: PELVIC PAIN
     Route: 048
     Dates: start: 20080811
  9. EPIVIR-HBV [Concomitant]
     Indication: HEPATITIS B
     Route: 048
     Dates: start: 20051227
  10. ENOXAPARIN SODIUM [Concomitant]
     Indication: PULMONARY EMBOLISM
     Dosage: 100 MG/ML SUBCUTANEOUS SOLUTION
     Route: 058
     Dates: start: 20101015
  11. ABIRATERONE ACETATE [Suspect]
     Indication: PROSTATE CANCER METASTATIC
     Route: 048
     Dates: start: 20101029, end: 20110411
  12. PREDNISONE [Suspect]
     Route: 048
     Dates: start: 20080818
  13. ESCITALOPRAM [Concomitant]
     Indication: DEPRESSION
     Route: 048
     Dates: start: 20050510
  14. GABAPENTIN [Concomitant]
     Indication: CANCER PAIN
     Route: 048
     Dates: start: 20101223
  15. PREDNISONE [Suspect]
     Indication: PROSTATE CANCER METASTATIC
     Route: 048
     Dates: start: 20101029
  16. CALCIUM ACETATE [Concomitant]
     Indication: GENERAL PHYSICAL CONDITION
     Route: 048
     Dates: start: 20050510
  17. LEUPROLIDE ACETATE [Concomitant]
     Route: 030
     Dates: start: 20040213
  18. GABAPENTIN [Concomitant]
     Route: 048
     Dates: start: 20100903, end: 20101223
  19. MILK OF MAGNESIA TAB [Concomitant]
     Indication: ABDOMINAL PAIN
     Route: 048
     Dates: start: 20110401
  20. VITAMIN D [Concomitant]
     Indication: GENERAL PHYSICAL CONDITION
     Route: 048
     Dates: start: 20050510
  21. FISH OIL [Concomitant]
     Indication: GENERAL PHYSICAL CONDITION
     Route: 048
     Dates: start: 20080304
  22. LEUPROLIDE ACETATE [Concomitant]
     Indication: PROSTATE CANCER
     Route: 030
     Dates: start: 20080818
  23. MULTI-VITAMINS [Concomitant]
     Indication: GENERAL PHYSICAL CONDITION
     Route: 048
     Dates: start: 20061128
  24. ACETAMINOPHEN [Concomitant]
     Indication: BACK PAIN
     Route: 048
     Dates: start: 20080811
  25. ASCORBIC ACID [Concomitant]
     Indication: GENERAL PHYSICAL CONDITION
     Route: 048
     Dates: start: 20070410

REACTIONS (5)
  - FAECAL INCONTINENCE [None]
  - SEPSIS [None]
  - ASTHENIA [None]
  - SPEECH DISORDER [None]
  - FALL [None]
